FAERS Safety Report 9867478 (Version 1)
Quarter: 2014Q1

REPORT INFORMATION
  Report Type: Spontaneous
  Country: FI (occurrence: FI)
  Receive Date: 20140204
  Receipt Date: 20140204
  Transmission Date: 20141002
  Serious: Yes (Hospitalization, Other)
  Sender: FDA-Public Use
  Company Number: FI-PFIZER INC-2014027728

PATIENT
  Age: 41 Year
  Sex: Female

DRUGS (4)
  1. SALAZOPYRIN EN [Suspect]
     Indication: ARTHRITIS REACTIVE
     Dosage: 500 MG, 2X2
     Route: 048
     Dates: start: 20131125, end: 20131228
  2. LEVEMIR [Concomitant]
     Indication: TYPE 1 DIABETES MELLITUS
     Dosage: 17+24 IU
     Route: 058
  3. NOVORAPID [Concomitant]
     Indication: TYPE 1 DIABETES MELLITUS
     Dosage: ACCORDING TO CARBOHYDRATES AND NEED
     Route: 058
  4. SOMAC [Concomitant]
     Indication: DYSPEPSIA
     Dosage: 20 MG, 1X/DAY
     Route: 048

REACTIONS (5)
  - Pyrexia [Unknown]
  - Cough [Unknown]
  - Drug eruption [Recovering/Resolving]
  - Hepatic enzyme increased [Recovered/Resolved]
  - C-reactive protein increased [Unknown]
